FAERS Safety Report 8479734-8 (Version None)
Quarter: 2012Q2

REPORT INFORMATION
  Report Type: 
  Country: None (occurrence: None)
  Receive Date: 20120629
  Receipt Date: 20120618
  Transmission Date: 20120825
  Serious: Yes (Hospitalization, Other)
  Sender: FDA-Public Use
  Company Number: AU-ROCHE-1080899

PATIENT
  Sex: Male

DRUGS (5)
  1. PERINDOPRIL ERBUMINE [Concomitant]
  2. INDAPAMIDE [Concomitant]
  3. VEMURAFENIB [Suspect]
     Indication: PRODUCT USED FOR UNKNOWN INDICATION
     Dates: start: 20111107, end: 20120323
  4. OPIOID ANALGESIC NOS [Concomitant]
  5. VEMURAFENIB [Suspect]
     Dates: start: 20120403, end: 20120424

REACTIONS (16)
  - HYPOXIA [None]
  - BRONCHIAL OBSTRUCTION [None]
  - DISEASE PROGRESSION [None]
  - RASH FOLLICULAR [None]
  - PHOTOSENSITIVITY REACTION [None]
  - KERATOSIS PILARIS [None]
  - LOWER RESPIRATORY TRACT INFECTION [None]
  - HYPERKERATOSIS [None]
  - DYSPNOEA [None]
  - SQUAMOUS CELL CARCINOMA OF SKIN [None]
  - MUSCULAR WEAKNESS [None]
  - APHASIA [None]
  - HEADACHE [None]
  - ACTINIC KERATOSIS [None]
  - VOMITING [None]
  - KERATOACANTHOMA [None]
